FAERS Safety Report 7986063-5 (Version None)
Quarter: 2011Q4

REPORT INFORMATION
  Report Type: 
  Country: None (occurrence: None)
  Receive Date: 20111216
  Receipt Date: 20110201
  Transmission Date: 20120403
  Serious: No
  Sender: FDA-Public Use
  Company Number: US-BRISTOL-MYERS SQUIBB COMPANY-15489750

PATIENT
  Age: 44 Year
  Sex: Male

DRUGS (3)
  1. LITHIUM [Concomitant]
  2. ABILIFY [Suspect]
     Indication: BIPOLAR DISORDER
  3. SEROQUEL [Concomitant]

REACTIONS (9)
  - MUSCLE SPASMS [None]
  - PARANOIA [None]
  - FEELING ABNORMAL [None]
  - BRUXISM [None]
  - DYSKINESIA [None]
  - PARAESTHESIA [None]
  - TACHYCARDIA [None]
  - LOOSE TOOTH [None]
  - TREMOR [None]
